FAERS Safety Report 9203326 (Version 1)
Quarter: 2013Q1

REPORT INFORMATION
  Report Type: Spontaneous
  Country: GB (occurrence: None)
  Receive Date: 20130328
  Receipt Date: 20130328
  Transmission Date: 20140127
  Serious: Yes (Other)
  Sender: FDA-Public Use
  Company Number: 2012-00885

PATIENT
  Age: 22 Year
  Sex: Female

DRUGS (2)
  1. SALBUTAMOL (SALBUTAMOL) [Suspect]
     Dosage: 40 PUFFS, SINGLE ADMINISTRATION, CUTANEOUS)
     Route: 003
  2. SALBUTAMOL (SALBUTAMOL) [Suspect]
     Indication: THERMAL BURN
     Dosage: 40 PUFFS, SINGLE ADMINISTRATION, CUTANEOUS)
     Route: 003

REACTIONS (4)
  - Burns third degree [None]
  - Intentional self-injury [None]
  - Device misuse [None]
  - Incorrect route of drug administration [None]
